FAERS Safety Report 26174964 (Version 2)
Quarter: 2025Q4

REPORT INFORMATION
  Report Type: Report from Study
  Country: JP (occurrence: JP)
  Receive Date: 20251218
  Receipt Date: 20251218
  Transmission Date: 20260118
  Serious: Yes (Other)
  Sender: ELI LILLY AND COMPANY
  Company Number: JP-ELI_LILLY_AND_COMPANY-JP202510029322

PATIENT

DRUGS (2)
  1. KISUNLA [Suspect]
     Active Substance: DONANEMAB-AZBT
     Indication: Product used for unknown indication
     Dosage: 700 MG
     Route: 065
     Dates: start: 20250613
  2. KISUNLA [Suspect]
     Active Substance: DONANEMAB-AZBT
     Dosage: 1400 MG
     Route: 065
     Dates: start: 202509, end: 202510

REACTIONS (5)
  - Cerebral haemorrhage [Unknown]
  - Chills [Recovering/Resolving]
  - Head discomfort [Unknown]
  - Pain [Unknown]
  - Brain oedema [Unknown]

NARRATIVE: CASE EVENT DATE: 20250922
